FAERS Safety Report 5982770-4 (Version None)
Quarter: 2008Q4

REPORT INFORMATION
  Report Type: 
  Country: None (occurrence: None)
  Receive Date: 20081205
  Receipt Date: 20081205
  Transmission Date: 20090506
  Serious: No
  Sender: FDA-Public Use
  Company Number: None

PATIENT
  Age: 48 Year
  Sex: Female
  Weight: 53.0709 kg

DRUGS (2)
  1. PREVACID [Suspect]
     Indication: HYPERCHLORHYDRIA
     Dosage: AS DIRECTED
     Dates: start: 20030725, end: 20031027
  2. PREVACID [Suspect]
     Indication: HYPERCHLORHYDRIA
     Dosage: AS DIRECTED
     Dates: start: 20031220, end: 20040108

REACTIONS (1)
  - BLOOD URINE PRESENT [None]
